FAERS Safety Report 7383906-3 (Version None)
Quarter: 2011Q1

REPORT INFORMATION
  Report Type: 
  Country: None (occurrence: None)
  Receive Date: 20110330
  Receipt Date: 20110321
  Transmission Date: 20110831
  Serious: Yes (Hospitalization, Other)
  Sender: FDA-Public Use
  Company Number: US-ASTRAZENECA-2010SE24201

PATIENT
  Age: 747 Month
  Sex: Male

DRUGS (3)
  1. PRILOSEC OTC [Suspect]
     Route: 048
     Dates: start: 20081201
  2. NEXIUM [Suspect]
     Route: 048
  3. TOPROL-XL [Suspect]
     Route: 048

REACTIONS (10)
  - PERIPHERAL VASCULAR DISORDER [None]
  - THROMBOEMBOLECTOMY [None]
  - DRUG DOSE OMISSION [None]
  - DYSPEPSIA [None]
  - VASCULAR STENT INSERTION [None]
  - THROAT CANCER [None]
  - GASTROOESOPHAGEAL REFLUX DISEASE [None]
  - OESOPHAGEAL STENT INSERTION [None]
  - TOOTH EXTRACTION [None]
  - DRUG INEFFECTIVE [None]
